FAERS Safety Report 4528844-6 (Version None)
Quarter: 2004Q4

REPORT INFORMATION
  Report Type: 
  Country: None (occurrence: None)
  Receive Date: 20041214
  Receipt Date: 20041122
  Transmission Date: 20050328
  Serious: Yes (Death)
  Sender: FDA-Public Use
  Company Number: F01200403764

PATIENT
  Age: 73 Year
  Sex: Male

DRUGS (5)
  1. OXALIPLATIN - SOLUTION - 100 MG/M2 [Suspect]
     Indication: COLORECTAL CANCER METASTATIC
     Dosage: 200 MG Q2W, INTRAVENOUS NOS
     Route: 042
     Dates: start: 20040712, end: 20040712
  2. FLUOROURACIL [Suspect]
     Dosage: 3000 MG Q2W, INTRAVENOUS NOS
     Route: 042
     Dates: start: 20040712, end: 20040714
  3. LEUCOVORIN CALCIUM [Suspect]
     Dosage: 400 MG Q2W INTRAVENOUS NOS
     Route: 042
     Dates: start: 20040712, end: 20040712
  4. LASIX [Concomitant]
  5. ZANIDIP (LERCANIDIPNE HYDROCHLORIDE) [Concomitant]

REACTIONS (17)
  - ANAEMIA [None]
  - ANOREXIA [None]
  - BLOOD PRESSURE ABNORMAL [None]
  - DIARRHOEA [None]
  - DISSEMINATED INTRAVASCULAR COAGULATION [None]
  - FLANK PAIN [None]
  - GENERAL PHYSICAL HEALTH DETERIORATION [None]
  - HEPATOMEGALY [None]
  - HYPERCALCAEMIA [None]
  - HYPOKALAEMIA [None]
  - HYPONATRAEMIA [None]
  - LEUKOCYTOSIS [None]
  - LUNG CREPITATION [None]
  - MALIGNANT NEOPLASM PROGRESSION [None]
  - MELAENA [None]
  - POLYDIPSIA [None]
  - THROMBOCYTOPENIA [None]
